FAERS Safety Report 9130169 (Version 1)
Quarter: 2013Q1

REPORT INFORMATION
  Report Type: Spontaneous
  Country: CA (occurrence: CA)
  Receive Date: 20130228
  Receipt Date: 20130228
  Transmission Date: 20140127
  Serious: Yes (Other)
  Sender: FDA-Public Use
  Company Number: CA-B.I. PHARMACEUTICALS,INC./RIDGEFIELD-2013-CN-00321CN

PATIENT
  Age: 69 Year
  Sex: Male
  Weight: 90.71 kg

DRUGS (5)
  1. PRADAX [Suspect]
     Route: 065
  2. ASA [Concomitant]
  3. CARVEDILOL [Concomitant]
  4. FLECAINIDE [Concomitant]
  5. FOSINOPRIL [Concomitant]

REACTIONS (4)
  - Diarrhoea [Recovered/Resolved]
  - Haematochezia [Recovered/Resolved]
  - Influenza like illness [Recovered/Resolved]
  - Muscle spasms [Recovered/Resolved]
